FAERS Safety Report 6442155-3 (Version None)
Quarter: 2009Q4

REPORT INFORMATION
  Report Type: 
  Country: None (occurrence: None)
  Receive Date: 20091116
  Receipt Date: 20091111
  Transmission Date: 20100525
  Serious: Yes (Other)
  Sender: FDA-Public Use
  Company Number: PHHY2009DE49639

PATIENT
  Sex: Male

DRUGS (1)
  1. EMSELEX EXTENDED RELEASE [Suspect]
     Indication: PROPHYLAXIS
     Dosage: 7.5 MG, QD
     Route: 048
     Dates: start: 20091107

REACTIONS (3)
  - COLITIS ULCERATIVE [None]
  - CONCOMITANT DISEASE PROGRESSION [None]
  - HAEMATOCHEZIA [None]
